FAERS Safety Report 11442879 (Version 1)
Quarter: 2015Q3

REPORT INFORMATION
  Report Type: Spontaneous
  Country: FR (occurrence: FR)
  Receive Date: 20150901
  Receipt Date: 20150901
  Transmission Date: 20151125
  Serious: Yes (Hospitalization)
  Sender: FDA-Public Use
  Company Number: FR-ASTRAZENECA-2015SE82602

PATIENT
  Age: 3130 Week
  Sex: Female

DRUGS (12)
  1. TEMESTA [Concomitant]
     Active Substance: LORAZEPAM
  2. PLAVIX [Concomitant]
     Active Substance: CLOPIDOGREL BISULFATE
  3. TERCIAN [Concomitant]
     Active Substance: CYAMEMAZINE
  4. DIAMICRON [Concomitant]
     Active Substance: GLICLAZIDE
     Indication: TYPE 2 DIABETES MELLITUS
     Dates: start: 20150709
  5. TRIATEC [Concomitant]
     Active Substance: RAMIPRIL
  6. BYDUREON [Suspect]
     Active Substance: EXENATIDE
     Indication: TYPE 2 DIABETES MELLITUS
     Route: 058
     Dates: start: 20150713
  7. METFORMINE [Concomitant]
     Active Substance: METFORMIN HYDROCHLORIDE
     Indication: TYPE 2 DIABETES MELLITUS
  8. IMOVANE [Concomitant]
     Active Substance: ZOPICLONE
  9. LEPTICUR [Concomitant]
     Active Substance: TROPATEPINE HYDROCHLORIDE
  10. RAMIPRIL. [Concomitant]
     Active Substance: RAMIPRIL
  11. LEVOTHYROX [Concomitant]
     Active Substance: LEVOTHYROXINE
  12. THERALITHE [Concomitant]

REACTIONS (1)
  - Renal failure [Recovered/Resolved]

NARRATIVE: CASE EVENT DATE: 20150716
